FAERS Safety Report 24291271 (Version 1)
Quarter: 2024Q3

REPORT INFORMATION
  Report Type: Spontaneous
  Country: US (occurrence: None)
  Receive Date: 20240906
  Receipt Date: 20240906
  Transmission Date: 20241017
  Serious: No
  Sender: DOMPE FARMACEUTICI
  Company Number: US-FARMAPROD-202308-2420

PATIENT
  Sex: Male

DRUGS (10)
  1. OXERVATE [Suspect]
     Active Substance: CENEGERMIN-BKBJ
     Indication: Neurotrophic keratopathy
     Route: 047
     Dates: start: 20230807
  2. PREDNISOLONE-BROMFENAC [Concomitant]
  3. DIFLUPREDNATE [Concomitant]
     Active Substance: DIFLUPREDNATE
  4. VITAMIN B COMPLEX [Concomitant]
     Active Substance: CYANOCOBALAMIN\DEXPANTHENOL\NIACINAMIDE\PYRIDOXINE HYDROCHLORIDE\RIBOFLAVIN 5^-PHOSPHATE SODIUM\THIA
  5. VITAMIN D-400 [Concomitant]
  6. CALCIUM [Concomitant]
     Active Substance: CALCIUM
     Dosage: 500 (1250)
  7. ILEVRO [Concomitant]
     Active Substance: NEPAFENAC
  8. DORZOLAMIDE [Concomitant]
     Active Substance: DORZOLAMIDE
  9. LOTEMAX [Concomitant]
     Active Substance: LOTEPREDNOL ETABONATE
  10. FISH OIL [Concomitant]
     Active Substance: FISH OIL
     Dosage: 100-160 MG

REACTIONS (2)
  - Eyelid pain [Not Recovered/Not Resolved]
  - Swelling of eyelid [Not Recovered/Not Resolved]
